FAERS Safety Report 20940009 (Version 1)
Quarter: 2022Q2

REPORT INFORMATION
  Report Type: Spontaneous
  Country: CH (occurrence: CH)
  Receive Date: 20220609
  Receipt Date: 20220609
  Transmission Date: 20220721
  Serious: Yes (Other)
  Sender: FDA-Public Use
  Company Number: CH-009507513-2206CHE002094

PATIENT
  Sex: Male

DRUGS (3)
  1. ONCOTICE [Suspect]
     Active Substance: BACILLUS CALMETTE-GUERIN SUBSTRAIN TICE LIVE ANTIGEN
     Indication: Bladder transitional cell carcinoma
     Dosage: UNK
  2. ONCOTICE [Suspect]
     Active Substance: BACILLUS CALMETTE-GUERIN SUBSTRAIN TICE LIVE ANTIGEN
     Indication: Bladder cancer
  3. CAPECITABINE [Suspect]
     Active Substance: CAPECITABINE
     Dosage: UNK
     Dates: start: 202111, end: 202112

REACTIONS (6)
  - Malignant neoplasm progression [Unknown]
  - Osteochondrosis [Unknown]
  - Renal failure [Unknown]
  - Bladder neoplasm surgery [Unknown]
  - Bladder transitional cell carcinoma recurrent [Unknown]
  - Hypertension [Unknown]

NARRATIVE: CASE EVENT DATE: 20200601
